FAERS Safety Report 24813430 (Version 1)
Quarter: 2025Q1

REPORT INFORMATION
  Report Type: Spontaneous
  Country: US (occurrence: US)
  Receive Date: 20250107
  Receipt Date: 20250107
  Transmission Date: 20250409
  Serious: Yes (Death)
  Sender: Unknown Manufacturer
  Company Number: US-MTPC-MTPA2025-0000158

PATIENT
  Sex: Male

DRUGS (2)
  1. RADICAVA ORS [Suspect]
     Active Substance: EDARAVONE
     Indication: Product used for unknown indication
     Route: 065
     Dates: start: 2022, end: 202408
  2. RADICAVA ORS [Suspect]
     Active Substance: EDARAVONE
     Indication: Product used for unknown indication
     Route: 065
     Dates: start: 2022, end: 202408

REACTIONS (1)
  - Death [Fatal]
